FAERS Safety Report 6344128-8 (Version None)
Quarter: 2009Q3

REPORT INFORMATION
  Report Type: 
  Country: None (occurrence: None)
  Receive Date: 20090821
  Receipt Date: 20090528
  Transmission Date: 20100115
  Serious: No
  Sender: FDA-Public Use
  Company Number: 8046955

PATIENT
  Sex: Female
  Weight: 87.9 kg

DRUGS (1)
  1. CIMZIA [Suspect]
     Indication: CROHN'S DISEASE
     Dosage: 400 MG /M PO
     Route: 048
     Dates: start: 20090311

REACTIONS (3)
  - HEADACHE [None]
  - HOT FLUSH [None]
  - INJECTION SITE IRRITATION [None]
